FAERS Safety Report 14018424 (Version 1)
Quarter: 2017Q3

REPORT INFORMATION
  Report Type: Spontaneous
  Country: US (occurrence: US)
  Receive Date: 20170927
  Receipt Date: 20170927
  Transmission Date: 20171128
  Serious: Yes (Life-Threatening, Disabling, Other)
  Sender: FDA-Public Use
  Company Number: None

PATIENT
  Age: 33 Year
  Sex: Female
  Weight: 76.05 kg

DRUGS (7)
  1. PEPPERMINT. [Concomitant]
     Active Substance: PEPPERMINT
  2. DEPAKOTE [Suspect]
     Active Substance: DIVALPROEX SODIUM
     Indication: DEPRESSION
     Dosage: ?          QUANTITY:1 TABLET(S);?
     Route: 048
     Dates: start: 20070531, end: 20170914
  3. ALBUTEROL. [Concomitant]
     Active Substance: ALBUTEROL
  4. LAMICTAL [Concomitant]
     Active Substance: LAMOTRIGINE
  5. VYVANSE [Concomitant]
     Active Substance: LISDEXAMFETAMINE DIMESYLATE
  6. BENTYL [Concomitant]
     Active Substance: DICYCLOMINE HYDROCHLORIDE
  7. AMLODIPINE [Concomitant]
     Active Substance: AMLODIPINE BESYLATE

REACTIONS (2)
  - Aggression [None]
  - Anger [None]

NARRATIVE: CASE EVENT DATE: 20070531
